FAERS Safety Report 6000450-6 (Version None)
Quarter: 2008Q4

REPORT INFORMATION
  Report Type: 
  Country: None (occurrence: None)
  Receive Date: 20081211
  Receipt Date: 20081129
  Transmission Date: 20090506
  Serious: Yes (Other)
  Sender: FDA-Public Use
  Company Number: 230024M08ESP

PATIENT
  Age: 61 Year
  Sex: Female

DRUGS (4)
  1. REBIF [Suspect]
     Indication: AMYOTROPHIC LATERAL SCLEROSIS
     Dosage: 44 MCG, 3 IN 1 WEEKS, SUBCUTANEOUS
     Route: 058
     Dates: start: 20080101
  2. MITOXANTRONE HYDROCHLORIDE [Suspect]
     Indication: AMYOTROPHIC LATERAL SCLEROSIS
     Dosage: 5 ML
     Dates: start: 20070410, end: 20080821
  3. DEPRAX (TRAZODONE HYDROCHLORIDE) [Concomitant]
  4. CLORAZEPATE DIPOTASSIUM [Concomitant]

REACTIONS (3)
  - ALOPECIA [None]
  - CHILLS [None]
  - HEADACHE [None]
